FAERS Safety Report 8592290-9 (Version None)
Quarter: 2012Q3

REPORT INFORMATION
  Report Type: 
  Country: None (occurrence: None)
  Receive Date: 20120814
  Receipt Date: 20120809
  Transmission Date: 20120928
  Serious: No
  Sender: FDA-Public Use
  Company Number: US-BAYER-2012-081845

PATIENT
  Age: 19 Year
  Sex: Female
  Weight: 58.957 kg

DRUGS (3)
  1. ADVIL [Concomitant]
  2. VITAMIN D [Concomitant]
     Dosage: 1000 U, UNK
  3. BETASERON [Suspect]
     Dosage: 0.25 MG (1ML), QOD
     Route: 058

REACTIONS (2)
  - INFLUENZA LIKE ILLNESS [None]
  - PAIN [None]
